FAERS Safety Report 19995076 (Version 4)
Quarter: 2022Q3

REPORT INFORMATION
  Report Type: Spontaneous
  Country: JP (occurrence: JP)
  Receive Date: 20211026
  Receipt Date: 20220714
  Transmission Date: 20221027
  Serious: Yes (Other)
  Sender: FDA-Public Use
  Company Number: JP-GLAXOSMITHKLINE-JP2021JPN218325

PATIENT

DRUGS (11)
  1. BENLYSTA [Suspect]
     Active Substance: BELIMUMAB
     Indication: Systemic lupus erythematosus
     Dosage: 10 MG/KG
     Dates: start: 20210519, end: 20210827
  2. BENLYSTA [Suspect]
     Active Substance: BELIMUMAB
     Indication: Lupus nephritis
  3. PREDONINE [Suspect]
     Active Substance: PREDNISOLONE
     Indication: Systemic lupus erythematosus
     Dosage: 15 MG
     Dates: start: 2015
  4. PREDONINE [Suspect]
     Active Substance: PREDNISOLONE
     Route: 048
     Dates: start: 20210519
  5. PREDONINE [Suspect]
     Active Substance: PREDNISOLONE
     Route: 048
     Dates: start: 20211119
  6. PREDONINE [Suspect]
     Active Substance: PREDNISOLONE
     Dosage: UNK
     Route: 048
  7. CELLCEPT [Suspect]
     Active Substance: MYCOPHENOLATE MOFETIL
     Indication: Lupus nephritis
     Dosage: 1500 MG, 1D
     Route: 048
     Dates: start: 2015
  8. CELLCEPT [Suspect]
     Active Substance: MYCOPHENOLATE MOFETIL
     Indication: Systemic lupus erythematosus
  9. TACROLIMUS [Concomitant]
     Active Substance: TACROLIMUS
  10. SULFAMETHOXAZOLE\TRIMETHOPRIM [Concomitant]
     Active Substance: SULFAMETHOXAZOLE\TRIMETHOPRIM
  11. SULFAMETHOXAZOLE + TRIMETHOPRIM COMBINATION DRUG [Concomitant]

REACTIONS (4)
  - Cytomegalovirus infection [Recovered/Resolved]
  - Herpes zoster [Recovered/Resolved with Sequelae]
  - Rash vesicular [Recovered/Resolved]
  - Post herpetic neuralgia [Recovered/Resolved]

NARRATIVE: CASE EVENT DATE: 20210709
